FAERS Safety Report 13195709 (Version 1)
Quarter: 2017Q1

REPORT INFORMATION
  Report Type: Spontaneous
  Country: US (occurrence: US)
  Receive Date: 20170208
  Receipt Date: 20170208
  Transmission Date: 20170428
  Serious: Yes (Other)
  Sender: FDA-Public Use
  Company Number: US-ACCORD-048070

PATIENT
  Age: 59 Year
  Sex: Female
  Weight: 82 kg

DRUGS (9)
  1. CEFEPIME [Concomitant]
     Active Substance: CEFEPIME HYDROCHLORIDE
     Indication: URINARY TRACT INFECTION
  2. TACROLIMUS. [Suspect]
     Active Substance: TACROLIMUS
     Indication: IMMUNOSUPPRESSION
  3. DAPTOMYCIN. [Concomitant]
     Active Substance: DAPTOMYCIN
     Indication: URINARY TRACT INFECTION
  4. MEROPENEM. [Concomitant]
     Active Substance: MEROPENEM
     Indication: URINARY TRACT INFECTION
  5. MYCOPHENOLIC ACID. [Suspect]
     Active Substance: MYCOPHENOLIC ACID
     Indication: IMMUNOSUPPRESSION
  6. MICAFUNGIN/MICAFUNGIN SODIUM [Concomitant]
     Indication: URINARY TRACT INFECTION
  7. PANCRELIPASE. [Concomitant]
     Active Substance: PANCRELIPASE
     Indication: PANCREATIC INSUFFICIENCY
     Route: 048
  8. LINEZOLID. [Concomitant]
     Active Substance: LINEZOLID
     Indication: URINARY TRACT INFECTION
  9. WARFARIN [Concomitant]
     Active Substance: WARFARIN
     Indication: DEEP VEIN THROMBOSIS

REACTIONS (5)
  - Diarrhoea [Recovering/Resolving]
  - Renal impairment [Not Recovered/Not Resolved]
  - Leukopenia [Recovered/Resolved]
  - Acute kidney injury [Unknown]
  - Bone marrow failure [Unknown]
